FAERS Safety Report 6259519-3 (Version None)
Quarter: 2009Q3

REPORT INFORMATION
  Report Type: 
  Country: None (occurrence: None)
  Receive Date: 20090708
  Receipt Date: 20090701
  Transmission Date: 20100115
  Serious: Yes (Other)
  Sender: FDA-Public Use
  Company Number: JP-BRISTOL-MYERS SQUIBB COMPANY-14690168

PATIENT
  Age: 56 Year
  Sex: Female

DRUGS (6)
  1. TAXOL [Suspect]
     Indication: BREAST CANCER
     Dosage: TAKEN ON DEC2005 APR2006
     Route: 041
     Dates: start: 20060601, end: 20060601
  2. CISPLATIN [Concomitant]
     Indication: BREAST CANCER
     Dates: start: 20040101
  3. EPIRUBICIN [Concomitant]
     Indication: BREAST CANCER
     Dates: start: 20040101
  4. FLUOROURACIL [Concomitant]
     Indication: BREAST CANCER
     Dates: start: 20040101
  5. UFT [Concomitant]
     Indication: BREAST CANCER
     Route: 048
     Dates: start: 20040101
  6. TRASTUZUMAB [Concomitant]
     Indication: BREAST CANCER
     Dates: start: 20051201

REACTIONS (1)
  - PULMONARY OEDEMA [None]
